FAERS Safety Report 9653262 (Version 1)
Quarter: 2013Q4

REPORT INFORMATION
  Report Type: Spontaneous
  Country: GB (occurrence: None)
  Receive Date: 20131028
  Receipt Date: 20131028
  Transmission Date: 20140711
  Serious: No
  Sender: FDA-Public Use
  Company Number: None

PATIENT
  Age: 37 Year
  Sex: Female
  Weight: 58 kg

DRUGS (1)
  1. METRONIDAZOLE [Suspect]
     Indication: VULVOVAGINAL CANDIDIASIS
     Route: 048
     Dates: start: 20131008, end: 20131015

REACTIONS (6)
  - Headache [None]
  - Fatigue [None]
  - Somnolence [None]
  - Clumsiness [None]
  - Feeling abnormal [None]
  - Blood urine present [None]
